FAERS Safety Report 4640010-2 (Version None)
Quarter: 2005Q2

REPORT INFORMATION
  Report Type: 
  Country: None (occurrence: None)
  Receive Date: 20050418
  Receipt Date: 20050314
  Transmission Date: 20051028
  Serious: Yes (Hospitalization)
  Sender: FDA-Public Use
  Company Number: 2004228916US

PATIENT
  Age: 16 Year
  Sex: Female
  Weight: 42.26 kg

DRUGS (6)
  1. XANAX XR [Suspect]
     Indication: PANIC DISORDER
     Dosage: 2 MG (1 IN 1 D), ORAL
     Route: 048
     Dates: start: 20040802, end: 20040812
  2. COCAINE (COCAINE) [Concomitant]
  3. MEDINITE (DEXTROMETHORPHAN HYDROBROMIDE, DOXYLAMINE SUCCINATE, EPHEDRI [Concomitant]
  4. SERTRALINE HCL [Concomitant]
  5. ETHANOL (ETHANOL) [Concomitant]
  6. CANNABIS (CANNABIS) [Concomitant]

REACTIONS (10)
  - CONDITION AGGRAVATED [None]
  - DEPRESSION [None]
  - DISINHIBITION [None]
  - DRUG ABUSER [None]
  - DRUG SCREEN POSITIVE [None]
  - IMPULSE-CONTROL DISORDER [None]
  - LACERATION [None]
  - OVERDOSE [None]
  - SELF INJURIOUS BEHAVIOUR [None]
  - SELF-MEDICATION [None]
